FAERS Safety Report 17596939 (Version 2)
Quarter: 2021Q3

REPORT INFORMATION
  Report Type: Spontaneous
  Country: US (occurrence: US)
  Receive Date: 20200330
  Receipt Date: 20210902
  Transmission Date: 20211014
  Serious: Yes (Other)
  Sender: FDA-Public Use
  Company Number: US-DRREDDYS-USA/USA/20/0121109

PATIENT
  Age: 17 Year
  Sex: Female

DRUGS (2)
  1. ZENATANE [Suspect]
     Active Substance: ISOTRETINOIN
     Dosage: RMA ISSUE DATE: 26?MAY?2021 6:53:17 PM, 30?JUNE?2021 6:02:05 PM
  2. ZENATANE [Suspect]
     Active Substance: ISOTRETINOIN
     Indication: PRODUCT USED FOR UNKNOWN INDICATION
     Dosage: RMA ISSUE DATE: 16?JANUARY?2020 12:00:00 AM, 25?FEBRUARY?2020 12:00:00 AM, 2?AUGUST?2021 6:11:19 PM.

REACTIONS (2)
  - Anxiety [Unknown]
  - Depression [Unknown]
